FAERS Safety Report 7545944-7 (Version None)
Quarter: 2011Q2

REPORT INFORMATION
  Report Type: 
  Country: None (occurrence: None)
  Receive Date: 20110614
  Receipt Date: 20110531
  Transmission Date: 20111010
  Serious: Yes (Other)
  Sender: FDA-Public Use
  Company Number: PHHY2011DE48515

PATIENT
  Sex: Male
  Weight: 86 kg

DRUGS (9)
  1. CALCIUM CHANNEL BLOCKERS [Concomitant]
  2. VALSARTAN [Suspect]
     Dosage: 80 MG, UNK
     Route: 048
  3. ALISKIREN [Suspect]
     Indication: HYPERTENSION
     Dosage: 150 MG, UNK
     Route: 048
     Dates: end: 20081106
  4. DIURETICS [Concomitant]
     Dosage: UNK
     Dates: start: 20100202
  5. STATINS [Concomitant]
  6. ALISKIREN [Suspect]
     Dosage: 300 MG, UNK
     Route: 048
     Dates: start: 20081106
  7. VALSARTAN [Suspect]
     Dosage: UNK
     Route: 048
     Dates: start: 20100202
  8. ANGIOTENSIN CONVERTING ENZYME BLOCKERS [Concomitant]
  9. NSAID'S [Concomitant]

REACTIONS (3)
  - ATRIAL FIBRILLATION [None]
  - CREATININE URINE INCREASED [None]
  - DYSPNOEA [None]
